FAERS Safety Report 5050324-2 (Version None)
Quarter: 2006Q3

REPORT INFORMATION
  Report Type: 
  Country: None (occurrence: None)
  Receive Date: 20060706
  Receipt Date: 20060630
  Transmission Date: 20061208
  Serious: Yes (Other)
  Sender: FDA-Public Use
  Company Number: HQWYE575005JUL06

PATIENT
  Age: 51 Year
  Sex: Female
  Weight: 118.04 kg

DRUGS (3)
  1. PRIMATENE MIST [Suspect]
     Indication: ASTHMA
     Dosage: 1-2 PUFFS AS NEEDED, INHALATION  YEARS AGO
     Route: 055
  2. PRIMATENE MIST [Suspect]
     Indication: ASTHMA
     Dosage: 1 TABLET AS NEEDED, ORAL  YEARS AGO
     Route: 048
  3. ALBUTEROL [Concomitant]

REACTIONS (3)
  - DRUG EFFECT DECREASED [None]
  - DRUG INEFFECTIVE [None]
  - MALAISE [None]
